FAERS Safety Report 18429521 (Version 2)
Quarter: 2020Q4

REPORT INFORMATION
  Report Type: Spontaneous
  Country: JP (occurrence: JP)
  Receive Date: 20201026
  Receipt Date: 20201110
  Transmission Date: 20210114
  Serious: Yes (Other)
  Sender: FDA-Public Use
  Company Number: JP-SUNOVION-2020SUN003108

PATIENT
  Age: 19 Year
  Sex: Female

DRUGS (6)
  1. PAROXETINE. [Concomitant]
     Active Substance: PAROXETINE
     Indication: MENTAL DISORDER
     Dosage: DOSE UNKNOWN
     Route: 065
  2. PERPHENAZINE MALEATE [Concomitant]
     Active Substance: PERPHENAZINE DIMALEATE
     Indication: MENTAL DISORDER
     Dosage: DOSE UNKNOWN
     Route: 065
  3. LUNESTA [Suspect]
     Active Substance: ESZOPICLONE
     Indication: INSOMNIA
     Dosage: 2 MG, QD
     Route: 048
     Dates: start: 20200910, end: 20201013
  4. LUNESTA [Suspect]
     Active Substance: ESZOPICLONE
     Dosage: DOSE UNKNOWN
     Route: 048
     Dates: start: 20201020
  5. RISPERIDONE. [Concomitant]
     Active Substance: RISPERIDONE
     Indication: MENTAL DISORDER
     Dosage: DOSE UNKNOWN
     Route: 065
  6. CLOXAZOLAM [Concomitant]
     Active Substance: CLOXAZOLAM
     Indication: MENTAL DISORDER
     Dosage: DOSE UNKNOWN
     Route: 065

REACTIONS (1)
  - Seizure [Recovered/Resolved]

NARRATIVE: CASE EVENT DATE: 20201010
